FAERS Safety Report 22068414 (Version 4)
Quarter: 2023Q4

REPORT INFORMATION
  Report Type: Spontaneous
  Country: BR (occurrence: BR)
  Receive Date: 20230307
  Receipt Date: 20231215
  Transmission Date: 20240110
  Serious: Yes (Life-Threatening, Hospitalization, Disabling, Other)
  Sender: FDA-Public Use
  Company Number: BR-MYLANLABS-2023M1023712

PATIENT
  Sex: Male
  Weight: 82 kg

DRUGS (25)
  1. CLOZAPINE [Suspect]
     Active Substance: CLOZAPINE
     Indication: Schizophrenia
     Dosage: 900 MILLIGRAM, QD (9 TABLETS PER DAY)
     Route: 048
     Dates: start: 2009
  2. CLOZAPINE [Suspect]
     Active Substance: CLOZAPINE
     Dosage: 200 MILLIGRAM AM
     Route: 048
     Dates: start: 2009
  3. CLOZAPINE [Suspect]
     Active Substance: CLOZAPINE
     Dosage: 700 MILLIGRAM PM
     Route: 048
     Dates: start: 2009
  4. CLOZAPINE [Suspect]
     Active Substance: CLOZAPINE
     Dosage: 900 MILLIGRAM, QD
     Route: 048
     Dates: start: 2009
  5. CLOZAPINE [Suspect]
     Active Substance: CLOZAPINE
     Dosage: 100 MILLIGRAM
     Route: 048
     Dates: start: 2007
  6. CLOZAPINE [Suspect]
     Active Substance: CLOZAPINE
     Dosage: UNK, QD
     Route: 048
  7. LYRICA [Suspect]
     Active Substance: PREGABALIN
     Indication: Nausea
     Dosage: 75 MILLIGRAM (PRN)
     Route: 065
  8. GEODON [Suspect]
     Active Substance: ZIPRASIDONE HYDROCHLORIDE\ZIPRASIDONE MESYLATE
     Indication: Schizophrenia
     Dosage: UNK
     Route: 065
     Dates: start: 2009
  9. LIORESAL [Suspect]
     Active Substance: BACLOFEN
     Indication: Tardive dyskinesia
     Dosage: 2 DOSAGE FORM PM (??-???-2012)
     Route: 048
  10. LIORESAL [Suspect]
     Active Substance: BACLOFEN
     Dosage: 2 DOSAGE FORM PM (??-???-2012)
     Route: 048
  11. PROZAC [Concomitant]
     Active Substance: FLUOXETINE HYDROCHLORIDE
     Indication: Anxiety
     Dosage: 80 MILLIGRAM, QD
     Route: 065
  12. ZYPREXA [Concomitant]
     Active Substance: OLANZAPINE
     Indication: Schizophrenia
     Dosage: 5 MILLIGRAM, QD
     Route: 065
  13. RISPERDAL [Concomitant]
     Active Substance: RISPERIDONE
     Indication: Schizophrenia
     Dosage: 3 MILLIGRAM, UNK
     Route: 065
  14. ESOMEPRAZOLE [Concomitant]
     Active Substance: ESOMEPRAZOLE
     Indication: Abdominal discomfort
     Dosage: 40 MILLIGRAM, QD
     Route: 065
  15. NEXIUM [Concomitant]
     Active Substance: ESOMEPRAZOLE MAGNESIUM
     Indication: Gastrointestinal disorder
     Dosage: UNK
     Route: 065
  16. NEXIUM [Concomitant]
     Active Substance: ESOMEPRAZOLE MAGNESIUM
     Dosage: 40 MILLIGRAM, QD (AT NIGHT)
     Route: 048
     Dates: start: 2009
  17. DEPAKOTE [Concomitant]
     Active Substance: DIVALPROEX SODIUM
     Indication: Seizure
     Dosage: UNK
     Route: 065
  18. DIAZEPAM [Concomitant]
     Active Substance: DIAZEPAM
     Indication: Agitation
     Dosage: 5 MILLIGRAM, BID (HALF TABLET TWICE A DAY)
     Route: 048
     Dates: start: 2009
  19. RISPERIDONE [Suspect]
     Active Substance: RISPERIDONE
     Indication: Schizophrenia
     Dosage: UNK
     Route: 065
     Dates: start: 2009
  20. SEROQUEL [Suspect]
     Active Substance: QUETIAPINE FUMARATE
     Indication: Schizophrenia
     Dosage: UNK
     Route: 065
     Dates: start: 2009
  21. ZYPREXA [Suspect]
     Active Substance: OLANZAPINE
     Indication: Schizophrenia
     Dosage: UNK
     Route: 065
     Dates: start: 2009
  22. ABILIFY [Suspect]
     Active Substance: ARIPIPRAZOLE
     Indication: Schizophrenia
     Dosage: UNK
     Route: 065
     Dates: start: 2009
  23. LITHIUM CARBONATE [Suspect]
     Active Substance: LITHIUM CARBONATE
     Indication: Schizophrenia
     Dosage: UNK
     Route: 065
     Dates: start: 2009
  24. HALDOL [Suspect]
     Active Substance: HALOPERIDOL
     Indication: Schizophrenia
     Dosage: UNK
     Route: 065
     Dates: start: 2009
  25. TRILEPTAL [Suspect]
     Active Substance: OXCARBAZEPINE
     Indication: Schizophrenia
     Dosage: UNK
     Route: 048
     Dates: start: 2009

REACTIONS (25)
  - Suicide attempt [Recovered/Resolved]
  - Road traffic accident [Recovered/Resolved]
  - Persecutory delusion [Recovering/Resolving]
  - Schizophrenia [Recovered/Resolved]
  - Neurodegenerative disorder [Not Recovered/Not Resolved]
  - Cognitive disorder [Not Recovered/Not Resolved]
  - Drug ineffective [Recovered/Resolved]
  - Dystonia [Not Recovered/Not Resolved]
  - Constipation [Not Recovered/Not Resolved]
  - Tooth fracture [Recovered/Resolved]
  - Seizure [Recovering/Resolving]
  - Nausea [Recovering/Resolving]
  - Tardive dyskinesia [Recovering/Resolving]
  - Panic reaction [Recovering/Resolving]
  - Delusional perception [Recovered/Resolved]
  - Physical disability [Unknown]
  - Anxiety [Recovering/Resolving]
  - Malaise [Unknown]
  - Circadian rhythm sleep disorder [Unknown]
  - Dyskinesia [Recovered/Resolved]
  - Product availability issue [Unknown]
  - Product physical issue [Unknown]
  - Wrong schedule [Not Recovered/Not Resolved]
  - Incorrect product administration duration [Not Recovered/Not Resolved]
  - Off label use [Unknown]

NARRATIVE: CASE EVENT DATE: 20090101
